FAERS Safety Report 5340366-1 (Version None)
Quarter: 2007Q2

REPORT INFORMATION
  Report Type: 
  Country: None (occurrence: None)
  Receive Date: 20070405
  Receipt Date: 20061102
  Transmission Date: 20071010
  Serious: No
  Sender: FDA-Public Use
  Company Number: USA050597556

PATIENT
  Age: 78 Year
  Sex: Female

DRUGS (4)
  1. FORTEO [Suspect]
     Indication: OSTEOPOROSIS
     Dosage: 10 UG, DAILY (1/D)
     Dates: start: 20050504
  2. CYMBALTA [Suspect]
     Indication: DEPRESSION
     Dosage: EACH EVENING
     Dates: start: 20050504, end: 20050512
  3. ACETAMINOPHEN [Concomitant]
  4. FORTEO [Concomitant]

REACTIONS (13)
  - ABDOMINAL DISTENSION [None]
  - ABDOMINAL PAIN UPPER [None]
  - BONE PAIN [None]
  - CRYING [None]
  - DIARRHOEA [None]
  - DIZZINESS [None]
  - INJECTION SITE BRUISING [None]
  - INSOMNIA [None]
  - MUSCULOSKELETAL PAIN [None]
  - MYALGIA [None]
  - NAUSEA [None]
  - PAIN IN EXTREMITY [None]
  - TREMOR [None]
